FAERS Safety Report 7530428-2 (Version None)
Quarter: 2011Q2

REPORT INFORMATION
  Report Type: 
  Country: None (occurrence: None)
  Receive Date: 20110607
  Receipt Date: 20110530
  Transmission Date: 20111010
  Serious: Yes (Hospitalization, Other)
  Sender: FDA-Public Use
  Company Number: JP-CEPHALON-2011001042

PATIENT
  Sex: Female

DRUGS (10)
  1. FLUCONAZOLE [Concomitant]
     Dates: start: 20110208
  2. RAMOSETRON HYDROCHLORIDE [Concomitant]
     Dates: start: 20110208
  3. LEVEMIR [Concomitant]
     Dates: start: 20110207
  4. INSULIN HUMAN [Concomitant]
     Dates: start: 20110207
  5. SENNOSIDE A [Concomitant]
     Dates: start: 20110201
  6. OMEPRAZOLE [Concomitant]
     Dates: start: 20110208
  7. URSODIOL [Concomitant]
     Dates: start: 20110228
  8. BENDAMUSTINE HCL [Suspect]
     Indication: B-CELL LYMPHOMA
     Route: 042
     Dates: start: 20110208
  9. ENTECAVIR [Concomitant]
     Dates: start: 20110215
  10. SULFAMETHOXAZOLE SODIUM [Concomitant]
     Dates: start: 20110208

REACTIONS (2)
  - HEPATITIS B [None]
  - MALAISE [None]
